FAERS Safety Report 21822808 (Version 1)
Quarter: 2023Q1

REPORT INFORMATION
  Report Type: Spontaneous
  Country: US (occurrence: US)
  Receive Date: 20230105
  Receipt Date: 20230105
  Transmission Date: 20230418
  Serious: No
  Sender: FDA-Public Use
  Company Number: US-AMNEAL PHARMACEUTICALS-2022-AMRX-03502

PATIENT
  Age: 26 Year
  Sex: Female
  Weight: 79.365 kg

DRUGS (1)
  1. ELURYNG [Suspect]
     Active Substance: ETHINYL ESTRADIOL\ETONOGESTREL
     Indication: Product used for unknown indication
     Dosage: 0.12/0.015MG/DAY/ RING
     Route: 067

REACTIONS (2)
  - Medical device pain [Unknown]
  - Device breakage [Unknown]

NARRATIVE: CASE EVENT DATE: 20221018
